FAERS Safety Report 16978324 (Version 2)
Quarter: 2019Q4

REPORT INFORMATION
  Report Type: Spontaneous
  Country: IE (occurrence: IE)
  Receive Date: 20191031
  Receipt Date: 20191211
  Transmission Date: 20200122
  Serious: Yes (Other)
  Sender: FDA-Public Use
  Company Number: IE-AMERICAN REGENT INC-2019002231

PATIENT
  Age: 1 Year
  Sex: Male
  Weight: 11 kg

DRUGS (2)
  1. VENOFER [Suspect]
     Active Substance: IRON SUCROSE
     Indication: ANAEMIA
     Dosage: RECEIVED 1 OF 5 PLANNED DOSES (40 MG)
     Route: 042
     Dates: start: 20190913, end: 20190913
  2. VENOFER [Suspect]
     Active Substance: IRON SUCROSE
     Dosage: RECEIVED 1 OF 5 PLANNED DOSES-35 MG OF A 1 MG/ML SOLUTION WAS INFUSED
     Route: 042
     Dates: start: 20190913, end: 20190913

REACTIONS (2)
  - Infusion site extravasation [Unknown]
  - Skin discolouration [Not Recovered/Not Resolved]

NARRATIVE: CASE EVENT DATE: 20190913
